FAERS Safety Report 24050883 (Version 1)
Quarter: 2024Q3

REPORT INFORMATION
  Report Type: Spontaneous
  Country: JP (occurrence: JP)
  Receive Date: 20240704
  Receipt Date: 20240704
  Transmission Date: 20241016
  Serious: Yes (Other)
  Sender: Phathom Pharmaceuticals
  Company Number: JP-PHATHOM PHARMACEUTICALS INC.-2024PHT00501

PATIENT
  Sex: Female

DRUGS (5)
  1. VONOPRAZAN FUMARATE [Suspect]
     Active Substance: VONOPRAZAN FUMARATE
     Indication: Gastric ulcer
     Dosage: UNK
     Route: 048
     Dates: start: 202310
  2. VONOPRAZAN FUMARATE [Suspect]
     Active Substance: VONOPRAZAN FUMARATE
     Indication: Gastrooesophageal reflux disease
  3. IRSOGLADINE MALEATE [Concomitant]
     Active Substance: IRSOGLADINE MALEATE
     Dosage: UNK
     Dates: start: 202310
  4. ZOLPIDEM TARTRATE [Concomitant]
     Active Substance: ZOLPIDEM TARTRATE
     Dosage: UNK
  5. ONEALFA [Concomitant]
     Active Substance: ALFACALCIDOL
     Dosage: UNK

REACTIONS (12)
  - Lung neoplasm malignant [Unknown]
  - Gingival swelling [Unknown]
  - Tooth loss [Unknown]
  - Periorbital pain [Unknown]
  - Osteoporosis [Unknown]
  - Dyspnoea [Unknown]
  - Abnormal sensation in eye [Unknown]
  - Eye pain [Unknown]
  - Pruritus [Unknown]
  - Fall [Unknown]
  - Diarrhoea [Unknown]
  - Intentional dose omission [Unknown]
